FAERS Safety Report 25435166 (Version 1)
Quarter: 2025Q2

REPORT INFORMATION
  Report Type: Spontaneous
  Country: US (occurrence: US)
  Receive Date: 20250613
  Receipt Date: 20250613
  Transmission Date: 20250717
  Serious: Yes (Other)
  Sender: BLUEPRINT MEDICINES
  Company Number: US-Blueprint Medicines Corporation-2025-AER-01274

PATIENT
  Age: 44 Year
  Sex: Female

DRUGS (2)
  1. AYVAKIT [Suspect]
     Active Substance: AVAPRITINIB
     Indication: Mast cell activation syndrome
     Route: 065
     Dates: start: 20250425
  2. AYVAKIT [Suspect]
     Active Substance: AVAPRITINIB
     Indication: Hereditary alpha tryptasaemia

REACTIONS (8)
  - Nerve block [Unknown]
  - Mastectomy [Unknown]
  - Abnormal dreams [Unknown]
  - Nightmare [Unknown]
  - Dizziness [Unknown]
  - Oedema peripheral [Unknown]
  - Face oedema [Unknown]
  - Localised oedema [Unknown]

NARRATIVE: CASE EVENT DATE: 20250602
